FAERS Safety Report 20859590 (Version 2)
Quarter: 2022Q2

REPORT INFORMATION
  Report Type: Spontaneous
  Country: EG (occurrence: EG)
  Receive Date: 20220523
  Receipt Date: 20220601
  Transmission Date: 20220720
  Serious: Yes (Life-Threatening, Hospitalization, Other)
  Sender: FDA-Public Use
  Company Number: EG-NOVOPROD-918452

PATIENT
  Age: 68 Year
  Sex: Female

DRUGS (7)
  1. INSULIN ASPART [Suspect]
     Active Substance: INSULIN ASPART
     Dosage: 40 IU, QD (15 U MORNING , 25 U AFTER LUNCH)
     Route: 058
  2. INSULIN ASPART [Suspect]
     Active Substance: INSULIN ASPART
     Indication: Diabetes mellitus
     Dosage: 48 IU, QD ((18 U BREAKFAST, 30 U AFTER LUNCH)
     Route: 058
     Dates: start: 201905
  3. ROWATINEX [ANETHOLE;BORNEOL;CAMPHENE;CINEOLE;FENCHONE;PINENE] [Concomitant]
     Indication: Renal lithiasis prophylaxis
     Dosage: 2 TABS (FROM 2 YEARS)
     Route: 048
  4. ROWATINEX [ANETHOLE;BORNEOL;CAMPHENE;CINEOLE;FENCHONE;PINENE] [Concomitant]
     Indication: Diuretic therapy
  5. PRETAL [Concomitant]
     Indication: Anticoagulant therapy
     Dosage: 1 TAB (FROM 2 YEARS)
     Route: 048
  6. EXFORGE HCT [Concomitant]
     Active Substance: AMLODIPINE BESYLATE\HYDROCHLOROTHIAZIDE\VALSARTAN
     Indication: Hypertension
     Dosage: 1 TAB (FROM 5 YEARS)
     Route: 048
  7. STROKA [Concomitant]
     Indication: Prophylaxis
     Dosage: 1 TAB AFTER LUNCH  (FROM 2 YEARS)
     Route: 048

REACTIONS (2)
  - Arteriosclerosis [Recovered/Resolved]
  - Diabetic foot [Not Recovered/Not Resolved]

NARRATIVE: CASE EVENT DATE: 20190101
